FAERS Safety Report 5909121-5 (Version None)
Quarter: 2008Q4

REPORT INFORMATION
  Report Type: 
  Country: None (occurrence: None)
  Receive Date: 20081006
  Receipt Date: 20081003
  Transmission Date: 20090506
  Serious: Yes (Other)
  Sender: FDA-Public Use
  Company Number: A0750407A

PATIENT
  Age: 45 Year
  Sex: Female
  Weight: 159.1 kg

DRUGS (8)
  1. ALLI [Suspect]
     Dosage: 2CAP PER DAY
     Route: 048
  2. CELEBREX [Concomitant]
  3. OMEPRAZOLE [Concomitant]
  4. LIPITOR [Concomitant]
  5. FEXOFENADINE [Concomitant]
  6. ACETAMINOPHEN [Concomitant]
  7. MULTI-VITAMIN [Concomitant]
  8. DOCUSATE [Concomitant]

REACTIONS (2)
  - DIABETES MELLITUS [None]
  - GLYCOSYLATED HAEMOGLOBIN INCREASED [None]
